FAERS Safety Report 5353596-X (Version None)
Quarter: 2007Q2

REPORT INFORMATION
  Report Type: 
  Country: None (occurrence: None)
  Receive Date: 20070612
  Receipt Date: 20070531
  Transmission Date: 20071010
  Serious: Yes (Other)
  Sender: FDA-Public Use
  Company Number: HQWYE470801JUN07

PATIENT
  Sex: Male
  Weight: 86.71 kg

DRUGS (6)
  1. SIROLIMUS [Suspect]
     Indication: PROPHYLAXIS AGAINST TRANSPLANT REJECTION
     Route: 048
     Dates: start: 20040806
  2. ZOCOR [Concomitant]
     Indication: HYPERLIPIDAEMIA
     Route: 065
     Dates: start: 20061116
  3. LANTUS [Concomitant]
     Dosage: UNKNOWN
     Route: 065
     Dates: start: 20040821
  4. COZAAR [Concomitant]
     Indication: HYPERTENSION
     Route: 065
     Dates: start: 20060511
  5. SEPTRA [Concomitant]
     Dosage: UNKNOWN
     Route: 065
     Dates: start: 20040805
  6. NOVOLOG [Concomitant]
     Dosage: UNKNOWN
     Route: 065
     Dates: start: 20040821

REACTIONS (1)
  - PANCREATIC CARCINOMA METASTATIC [None]
